FAERS Safety Report 13291411 (Version 20)
Quarter: 2019Q3

REPORT INFORMATION
  Report Type: Report from Study
  Country: GB (occurrence: GB)
  Receive Date: 20170303
  Receipt Date: 20190717
  Transmission Date: 20191004
  Serious: Yes (Hospitalization, Other)
  Sender: FDA-Public Use
  Company Number: GB-BRISTOL-MYERS SQUIBB COMPANY-BMS-2017-016543

PATIENT
  Sex: Male

DRUGS (1)
  1. ABATACEPT [Suspect]
     Active Substance: ABATACEPT
     Indication: RHEUMATOID ARTHRITIS
     Dosage: 125 MG, QWK
     Route: 058
     Dates: start: 20140721

REACTIONS (13)
  - Malaise [Unknown]
  - Pain [Unknown]
  - Jaw disorder [Unknown]
  - Cardiac disorder [Unknown]
  - Product dose omission [Unknown]
  - Bronchitis [Unknown]
  - Bone disorder [Unknown]
  - Rheumatoid arthritis [Unknown]
  - Hypotension [Unknown]
  - Drug ineffective [Unknown]
  - Cardiac failure [Unknown]
  - Impaired healing [Unknown]
  - Condition aggravated [Unknown]
